FAERS Safety Report 5839459-1 (Version None)
Quarter: 2008Q3

REPORT INFORMATION
  Report Type: 
  Country: None (occurrence: None)
  Receive Date: 20080807
  Receipt Date: 20080723
  Transmission Date: 20090109
  Serious: Yes (Disabling, Other)
  Sender: FDA-Public Use
  Company Number: PHHY2008CA12516

PATIENT
  Age: 79 Year
  Sex: Female

DRUGS (4)
  1. VISUDYNE [Suspect]
     Indication: MACULAR DEGENERATION
     Dates: start: 20080418, end: 20080418
  2. TERAZOSIN HCL [Concomitant]
  3. DIAMICRON [Concomitant]
  4. ATACAND [Concomitant]

REACTIONS (9)
  - AURICULAR SWELLING [None]
  - EAR LOBE INFECTION [None]
  - GENERALISED ERYTHEMA [None]
  - HOT FLUSH [None]
  - PRURITUS [None]
  - PURULENT DISCHARGE [None]
  - RASH PUSTULAR [None]
  - SKIN PLAQUE [None]
  - VISUAL ACUITY REDUCED [None]
